FAERS Safety Report 9161281 (Version 1)
Quarter: 2013Q1

REPORT INFORMATION
  Report Type: Report from Study
  Country: US (occurrence: US)
  Receive Date: 20130313
  Receipt Date: 20130313
  Transmission Date: 20140127
  Serious: No
  Sender: FDA-Public Use
  Company Number: US-009507513-1303USA005898

PATIENT
  Age: 54 Year
  Sex: Female
  Weight: 73.83 kg

DRUGS (5)
  1. BOCEPREVIR [Suspect]
     Indication: CHRONIC HEPATITIS C
     Dosage: 200 MG, TID
     Route: 048
     Dates: start: 20111123
  2. RIBAVIRIN [Suspect]
     Indication: CHRONIC HEPATITIS C
     Dosage: SANDOZ 1000 MG
     Dates: start: 20111123
  3. PEGINTERFERON ALFA-2A [Suspect]
     Indication: CHRONIC HEPATITIS C
     Dosage: 180 MICROGRAM, QW
     Route: 058
     Dates: start: 20111123
  4. TRIAMCINOLONE [Concomitant]
     Dosage: UNK
     Dates: start: 20120116
  5. LISINOPRIL [Concomitant]

REACTIONS (4)
  - Flank pain [Unknown]
  - Nausea [Unknown]
  - Vomiting [Unknown]
  - Depression [Unknown]
